FAERS Safety Report 17231249 (Version 6)
Quarter: 2022Q1

REPORT INFORMATION
  Report Type: Report from Study
  Country: CA (occurrence: CA)
  Receive Date: 20200103
  Receipt Date: 20220125
  Transmission Date: 20220424
  Serious: Yes (Other)
  Sender: FDA-Public Use
  Company Number: NVSC2019CA083660

PATIENT
  Sex: Male

DRUGS (12)
  1. ERELZI [Suspect]
     Active Substance: ETANERCEPT-SZZS
     Indication: Psoriatic arthropathy
     Dosage: 50 MG, QW
     Route: 058
     Dates: start: 20191114, end: 20200220
  2. ERELZI [Suspect]
     Active Substance: ETANERCEPT-SZZS
     Dosage: UNK
     Route: 065
     Dates: start: 20200326
  3. ERELZI [Suspect]
     Active Substance: ETANERCEPT-SZZS
     Dosage: UNK
     Route: 065
     Dates: start: 202109
  4. PREDNISONE [Concomitant]
     Active Substance: PREDNISONE
     Indication: Product used for unknown indication
     Dosage: UNK
     Route: 065
  5. NAPROXEN [Concomitant]
     Active Substance: NAPROXEN
     Indication: Product used for unknown indication
     Dosage: UNK
     Route: 065
  6. ENBREL [Concomitant]
     Active Substance: ETANERCEPT
     Indication: Product used for unknown indication
     Dosage: UNK
     Route: 065
  7. IBUPROFEN [Concomitant]
     Active Substance: IBUPROFEN
     Indication: Product used for unknown indication
     Dosage: UNK
     Route: 065
  8. VITAMIN D3 [Concomitant]
     Active Substance: CHOLECALCIFEROL
     Indication: Product used for unknown indication
     Dosage: UNK UNK, QD (STRENGTH: 2000 UNIT)
     Route: 065
  9. METHYLCOBALAMIN [Concomitant]
     Active Substance: METHYLCOBALAMIN
     Indication: Product used for unknown indication
     Dosage: UNK, QD (VITAMIN B12)
     Route: 048
  10. VITAMINS [Concomitant]
     Active Substance: VITAMINS
     Indication: Product used for unknown indication
     Dosage: 2 DOSAGE FORM, QD
     Route: 048
  11. SYMBICORT [Concomitant]
     Active Substance: BUDESONIDE\FORMOTEROL FUMARATE DIHYDRATE
     Indication: Product used for unknown indication
     Dosage: UNK UNK, BID (STRENGTH: 200)
     Route: 065
  12. ARAVA [Concomitant]
     Active Substance: LEFLUNOMIDE
     Indication: Product used for unknown indication
     Dosage: UNK
     Route: 065

REACTIONS (23)
  - Pulmonary thrombosis [Unknown]
  - Urethral stenosis [Unknown]
  - Urinary retention [Unknown]
  - Kidney infection [Unknown]
  - Chromaturia [Unknown]
  - Renal pain [Unknown]
  - Cellulitis [Recovering/Resolving]
  - Haematoma [Unknown]
  - International normalised ratio increased [Unknown]
  - Headache [Recovered/Resolved]
  - Arthralgia [Unknown]
  - Pain [Unknown]
  - Asthma [Unknown]
  - Sleep apnoea syndrome [Unknown]
  - Foot deformity [Unknown]
  - Wound [Unknown]
  - Gallbladder disorder [Recovered/Resolved]
  - Cholelithiasis [Unknown]
  - Back pain [Unknown]
  - Injection site bruising [Unknown]
  - Psoriasis [Unknown]
  - Cystitis [Unknown]
  - Bladder pain [Unknown]

NARRATIVE: CASE EVENT DATE: 20190101
